FAERS Safety Report 9686738 (Version 2)
Quarter: 2013Q4

REPORT INFORMATION
  Report Type: Spontaneous
  Country: US (occurrence: US)
  Receive Date: 20131113
  Receipt Date: 20131205
  Transmission Date: 20140711
  Serious: No
  Sender: FDA-Public Use
  Company Number: US-PFIZER INC-2013324164

PATIENT
  Age: 43 Year
  Sex: Female
  Weight: 67.6 kg

DRUGS (3)
  1. EFFEXOR XR [Suspect]
     Indication: DEPRESSION
     Dosage: 75 MG, 1X/DAY
     Dates: start: 201308, end: 20131101
  2. EFFEXOR XR [Suspect]
     Dosage: 150 MG, 1X/DAY
     Dates: start: 20131101
  3. SPIRONOLACTONE [Concomitant]
     Dosage: 100 MG, UNK

REACTIONS (2)
  - Drug ineffective [Unknown]
  - Depression [Unknown]
